FAERS Safety Report 5109335-0 (Version None)
Quarter: 2006Q3

REPORT INFORMATION
  Report Type: 
  Country: None (occurrence: None)
  Receive Date: 20060920
  Receipt Date: 20060911
  Transmission Date: 20061208
  Serious: Yes (Other)
  Sender: FDA-Public Use
  Company Number: US-JNJFOC-20060803030

PATIENT
  Sex: Female
  Weight: 29.94 kg

DRUGS (2)
  1. REMICADE [Suspect]
     Route: 042
  2. REMICADE [Suspect]
     Indication: CROHN'S DISEASE
     Route: 042

REACTIONS (12)
  - ASTHENIA [None]
  - BLADDER NEOPLASM [None]
  - CHOKING [None]
  - COUGH [None]
  - DIARRHOEA [None]
  - DYSPHAGIA [None]
  - HEADACHE [None]
  - MALAISE [None]
  - MENTAL IMPAIRMENT [None]
  - PYREXIA [None]
  - SYNCOPE [None]
  - WEIGHT DECREASED [None]
